FAERS Safety Report 14924764 (Version 1)
Quarter: 2018Q2

REPORT INFORMATION
  Report Type: Spontaneous
  Country: US (occurrence: US)
  Receive Date: 20180504
  Receipt Date: 20180504
  Transmission Date: 20180711
  Serious: No
  Sender: FDA-Public Use
  Company Number: None

PATIENT
  Age: 50 Year
  Sex: Female

DRUGS (1)
  1. TENOFOVIR DF TAB 300MG TEVA PHARMACEUTICALS USA [Suspect]
     Active Substance: TENOFOVIR DISOPROXIL FUMARATE

REACTIONS (2)
  - Fatigue [None]
  - Insomnia [None]

NARRATIVE: CASE EVENT DATE: 20180425
